FAERS Safety Report 21381942 (Version 3)
Quarter: 2022Q4

REPORT INFORMATION
  Report Type: Report from Study
  Country: IT (occurrence: IT)
  Receive Date: 20220927
  Receipt Date: 20221011
  Transmission Date: 20230113
  Serious: Yes (Other)
  Sender: FDA-Public Use
  Company Number: None

PATIENT
  Age: 91 Year
  Sex: Female

DRUGS (11)
  1. HALCION [Suspect]
     Active Substance: TRIAZOLAM
     Indication: Drug abuse
     Dosage: UNK
     Route: 048
     Dates: start: 20220627, end: 20220627
  2. LYRICA [Suspect]
     Active Substance: PREGABALIN
     Dates: start: 20220627, end: 20220627
  3. FENTANYL [Suspect]
     Active Substance: FENTANYL
     Dates: start: 20220627, end: 20220627
  4. TRAZODONE HYDROCHLORIDE [Suspect]
     Active Substance: TRAZODONE HYDROCHLORIDE
     Indication: Drug abuse
     Route: 048
     Dates: start: 20220627, end: 20220627
  5. ORAMORPH SR SUSTAINED RELEASE [Suspect]
     Active Substance: MORPHINE SULFATE
     Indication: Drug abuse
     Route: 048
     Dates: start: 20220627, end: 20220627
  6. NITROGLYCERIN [Suspect]
     Active Substance: NITROGLYCERIN
     Indication: Drug abuse
     Route: 048
     Dates: start: 20220627, end: 20220627
  7. LEVOTHYROXINE SODIUM [Concomitant]
     Active Substance: LEVOTHYROXINE SODIUM
  8. LASIX [Concomitant]
     Active Substance: FUROSEMIDE
  9. ESOMEPRAZOLE [Concomitant]
     Active Substance: ESOMEPRAZOLE
  10. NEBIVOLOL [Concomitant]
     Active Substance: NEBIVOLOL
  11. PLAVIX [Concomitant]
     Active Substance: CLOPIDOGREL BISULFATE

REACTIONS (2)
  - Drug abuse [Recovering/Resolving]
  - Sopor [Recovering/Resolving]

NARRATIVE: CASE EVENT DATE: 20220627
